FAERS Safety Report 7748318-9 (Version None)
Quarter: 2011Q3

REPORT INFORMATION
  Report Type: 
  Country: None (occurrence: None)
  Receive Date: 20110913
  Receipt Date: 20110906
  Transmission Date: 20111222
  Serious: Yes (Other)
  Sender: FDA-Public Use
  Company Number: PHHY2011FI78944

PATIENT
  Age: 59 Year
  Sex: Female

DRUGS (11)
  1. DEVISOL [Concomitant]
     Dosage: 20 UG, UNK
  2. ZOLEDRONOC ACID [Suspect]
     Indication: OSTEOPOROSIS
     Dosage: UNK UKN, UNK
     Route: 042
     Dates: start: 20110329
  3. KEPPRA [Concomitant]
     Dosage: 1 TABL IN THE MORNING AND 1 TABL IN THE EVENING
  4. ACETAMINOPHEN [Concomitant]
     Dosage: 500 MG, 1-2 TABL 2-3 TIMES A DAY
  5. EFFORTIL [Concomitant]
     Dosage: 1 TABL 3 TIMES A DAY
  6. TIBOLONE [Concomitant]
     Dosage: 2.5 MG, 1 TABL IN THE MORNING
  7. KALCIPOS-D [Concomitant]
     Dosage: 2 TABL ONCE A DAY
  8. THYROXIN [Concomitant]
     Dosage: 1.5 TABL/DAY FOR 5 WEEKDAYS, 2 TABL/DAY FOR 2 WEEKDAYS
  9. SIMVASTATIN [Concomitant]
     Dosage: 20 MG, 1 TABL IN THE EVENING
  10. CITALOPRAM HYDROBROMIDE [Concomitant]
     Dosage: 20 MG, 1 TABL IN THE MORNING
  11. PRIMASPAN [Concomitant]
     Dosage: 100 MG, 1 TABL IN THE MORNING

REACTIONS (3)
  - JOINT DISLOCATION [None]
  - ORAL DISCOMFORT [None]
  - PAIN IN JAW [None]
